FAERS Safety Report 11426056 (Version 1)
Quarter: 2015Q3

REPORT INFORMATION
  Report Type: Spontaneous
  Country: US (occurrence: US)
  Receive Date: 20150821
  Receipt Date: 20150821
  Transmission Date: 20151125
  Serious: No
  Sender: FDA-Public Use
  Company Number: US-ELI_LILLY_AND_COMPANY-US201012003244

PATIENT
  Sex: Male

DRUGS (5)
  1. NOVOLIN R [Concomitant]
     Active Substance: INSULIN HUMAN
  2. HUMULIN R [Suspect]
     Active Substance: INSULIN HUMAN
     Indication: DIABETES MELLITUS
  3. METFORMIN [Concomitant]
     Active Substance: METFORMIN HYDROCHLORIDE
  4. BYETTA [Concomitant]
     Active Substance: EXENATIDE
     Dosage: UNK, 2/D
  5. GLUCOPHAGE [Concomitant]
     Active Substance: METFORMIN HYDROCHLORIDE
     Dosage: UNK, 4/D

REACTIONS (1)
  - Intercepted drug dispensing error [Unknown]
